FAERS Safety Report 13884267 (Version 1)
Quarter: 2017Q3

REPORT INFORMATION
  Report Type: Spontaneous
  Country: US (occurrence: US)
  Receive Date: 20170821
  Receipt Date: 20170821
  Transmission Date: 20171127
  Serious: Yes (Other)
  Sender: FDA-Public Use
  Company Number: US-TEVA-761360USA

PATIENT
  Age: 51 Year
  Sex: Female

DRUGS (5)
  1. OXALIPLATIN. [Suspect]
     Active Substance: OXALIPLATIN
     Dosage: 100MG/20ML
     Route: 065
  2. ANTIEMETICS [Concomitant]
     Active Substance: UNSPECIFIED INGREDIENT
     Dosage: PRN
  3. NEULASTA [Concomitant]
     Active Substance: PEGFILGRASTIM
  4. OXALIPLATIN. [Suspect]
     Active Substance: OXALIPLATIN
     Dosage: 50MG/10 ML
     Route: 065
  5. ADVIL [Concomitant]
     Active Substance: IBUPROFEN
     Dosage: PRN

REACTIONS (2)
  - Thrombocytopenia [Recovered/Resolved]
  - Neutropenia [Recovered/Resolved]

NARRATIVE: CASE EVENT DATE: 20161228
